FAERS Safety Report 15110433 (Version 4)
Quarter: 2018Q4

REPORT INFORMATION
  Report Type: Report from Study
  Country: IL (occurrence: IL)
  Receive Date: 20180705
  Receipt Date: 20181112
  Transmission Date: 20190204
  Serious: Yes (Hospitalization)
  Sender: FDA-Public Use
  Company Number: IL-ACTELION-A-CH2018-167457

PATIENT
  Age: 59 Year
  Sex: Female

DRUGS (16)
  1. OPSUMIT [Suspect]
     Active Substance: MACITENTAN
     Dosage: UNK
     Route: 048
     Dates: start: 20180904, end: 20180910
  2. UPTRAVI [Suspect]
     Active Substance: SELEXIPAG
     Dosage: 1200 MCG, BID
     Route: 048
     Dates: end: 20181020
  3. AVILAC [Concomitant]
  4. FOLIC ACID. [Concomitant]
     Active Substance: FOLIC ACID
  5. UPTRAVI [Suspect]
     Active Substance: SELEXIPAG
     Indication: PULMONARY ARTERIAL HYPERTENSION
     Dosage: 1600 MCG, BID
     Route: 048
     Dates: start: 20180612, end: 20180831
  6. CALTRATE [Concomitant]
     Active Substance: CALCIUM CARBONATE
  7. NEPRO HP [Concomitant]
  8. OPSUMIT [Suspect]
     Active Substance: MACITENTAN
     Dosage: 10 MG, QD
     Route: 048
     Dates: start: 201809
  9. UPTRAVI [Suspect]
     Active Substance: SELEXIPAG
     Dosage: UNK
     Route: 048
     Dates: start: 20180423
  10. UPTRAVI [Suspect]
     Active Substance: SELEXIPAG
     Dosage: 1600 MCG, BID
     Route: 048
     Dates: start: 20180904, end: 20180910
  11. TADALAFIL. [Concomitant]
     Active Substance: TADALAFIL
  12. MAGNESIUM [Concomitant]
     Active Substance: MAGNESIUM
  13. UPTRAVI [Suspect]
     Active Substance: SELEXIPAG
     Dosage: 1600 MCG, BID
     Route: 048
     Dates: start: 201809
  14. FUSID [FUROSEMIDE] [Concomitant]
     Active Substance: FUROSEMIDE
  15. OPSUMIT [Suspect]
     Active Substance: MACITENTAN
     Indication: PULMONARY ARTERIAL HYPERTENSION
     Dosage: 10 MG, QD
     Route: 048
     Dates: start: 20180111
  16. ALDACTONE [Concomitant]
     Active Substance: SPIRONOLACTONE

REACTIONS (9)
  - Asthenia [Recovered/Resolved]
  - Umbilical hernia [Unknown]
  - Umbilical hernia repair [Unknown]
  - Intestinal operation [Recovered/Resolved with Sequelae]
  - Abdominal pain [Recovered/Resolved]
  - Viral upper respiratory tract infection [Recovered/Resolved]
  - Intestinal obstruction [Recovered/Resolved with Sequelae]
  - Fatigue [Recovered/Resolved]
  - Dyspnoea [Recovered/Resolved]

NARRATIVE: CASE EVENT DATE: 20180126
